FAERS Safety Report 21005300 (Version 2)
Quarter: 2023Q4

REPORT INFORMATION
  Report Type: Spontaneous
  Country: FR (occurrence: FR)
  Receive Date: 20220624
  Receipt Date: 20231023
  Transmission Date: 20240110
  Serious: Yes (Life-Threatening, Other)
  Sender: FDA-Public Use
  Company Number: FR-AFSSAPS-CN20221134

PATIENT
  Age: 56 Year
  Sex: Female

DRUGS (8)
  1. XGEVA [Suspect]
     Active Substance: DENOSUMAB
     Indication: Metastases to bone
     Dosage: 1 INJECTION 1*/MONTH EVERY 4 WEEKS IF CALCEMIA } 2.20
     Route: 058
  2. ABEMACICLIB [Suspect]
     Active Substance: ABEMACICLIB
     Indication: Breast cancer
     Dosage: 100 MG X2/DAYS THEN STOPPED FOR 7 DAYS
     Route: 048
     Dates: start: 20220223, end: 20220427
  3. ABEMACICLIB [Suspect]
     Active Substance: ABEMACICLIB
     Dosage: 100 MG X2/DAY
     Route: 048
     Dates: start: 20220504
  4. ABEMACICLIB [Suspect]
     Active Substance: ABEMACICLIB
     Dosage: 150 MG X 2/DAY THEN STOPPED FOR 7 DAYS
     Route: 048
     Dates: start: 20220120, end: 20220216
  5. ABEMACICLIB [Suspect]
     Active Substance: ABEMACICLIB
     Dosage: 100 MG X2/DAY THEN STOP FOR 7 DAYS
     Route: 048
     Dates: start: 20220223, end: 20220427
  6. XARELTO [Suspect]
     Active Substance: RIVAROXABAN
     Indication: Venous thrombosis
     Dosage: 1 TABLET 20MG IN THE MORNING 1 HOUR APART WITH ABEMACICLIB
     Route: 048
     Dates: start: 2020
  7. CALCIUM CARBONATE\CHOLECALCIFEROL [Concomitant]
     Active Substance: CALCIUM CARBONATE\CHOLECALCIFEROL
     Indication: Hypocalcaemia
     Dosage: 1 TABLET/DAY
  8. FULVESTRANT [Concomitant]
     Active Substance: FULVESTRANT
     Indication: Breast cancer
     Dosage: 250 MG/5 ML 1 X/MONTH
     Route: 030
     Dates: start: 20220120

REACTIONS (3)
  - Neutropenia [Recovered/Resolved]
  - Neutropenia [Recovered/Resolved]
  - Neutropenia [Recovered/Resolved]

NARRATIVE: CASE EVENT DATE: 20220216
